FAERS Safety Report 8594255-X (Version None)
Quarter: 2012Q3

REPORT INFORMATION
  Report Type: 
  Country: None (occurrence: None)
  Receive Date: 20120815
  Receipt Date: 20120807
  Transmission Date: 20120928
  Serious: No
  Sender: FDA-Public Use
  Company Number: US-009507513-1207USA008333

PATIENT

DRUGS (4)
  1. ZOFRAN [Concomitant]
  2. ZOLINZA [Suspect]
     Indication: BRAIN STEM GLIOMA
     Dosage: 230 MG/M2, QD
     Route: 048
     Dates: start: 20120625
  3. HEXADROL [Suspect]
     Route: 048
  4. ALBUTEROL [Concomitant]

REACTIONS (1)
  - NO ADVERSE EVENT [None]
